FAERS Safety Report 8261221-3 (Version None)
Quarter: 2012Q2

REPORT INFORMATION
  Report Type: 
  Country: None (occurrence: None)
  Receive Date: 20120405
  Receipt Date: 20120329
  Transmission Date: 20120825
  Serious: Yes (Other)
  Sender: FDA-Public Use
  Company Number: TR-US-EMD SERONO, INC.-7122827

PATIENT
  Sex: Female
  Weight: 54 kg

DRUGS (2)
  1. IBRUPROFEN [Suspect]
     Indication: PAIN
     Route: 048
     Dates: start: 20110201
  2. REBIF [Suspect]
     Indication: MULTIPLE SCLEROSIS
     Route: 058
     Dates: start: 20110201, end: 20120206

REACTIONS (2)
  - BLOOD TEST ABNORMAL [None]
  - EPILEPSY [None]
